FAERS Safety Report 10481925 (Version 1)
Quarter: 2014Q3

REPORT INFORMATION
  Report Type: Spontaneous
  Country: US (occurrence: US)
  Receive Date: 20140929
  Receipt Date: 20140929
  Transmission Date: 20150326
  Serious: Yes (Other)
  Sender: FDA-Public Use
  Company Number: PHHY2014US124261

PATIENT
  Age: 41 Year
  Sex: Female

DRUGS (11)
  1. COLCHICINE. [Suspect]
     Active Substance: COLCHICINE
  2. ADALIMUMAB [Concomitant]
     Active Substance: ADALIMUMAB
  3. PREDNISONE. [Suspect]
     Active Substance: PREDNISONE
     Dosage: 7.5 MG, UNK
  4. DAPSONE. [Suspect]
     Active Substance: DAPSONE
  5. CICLOSPORIN [Suspect]
     Active Substance: CYCLOSPORINE
  6. STEROIDS [Suspect]
     Active Substance: UNSPECIFIED INGREDIENT
     Route: 042
  7. IVIG [Suspect]
     Active Substance: HUMAN IMMUNOGLOBULIN G
  8. MINOCYCLINE [Suspect]
     Active Substance: MINOCYCLINE\MINOCYCLINE HYDROCHLORIDE
  9. MYCOPHENOLATE MOFETIL. [Suspect]
     Active Substance: MYCOPHENOLATE MOFETIL
  10. PREDNISONE. [Suspect]
     Active Substance: PREDNISONE
     Dosage: 120 MG, UNK
  11. HYDROXYCHLOROQUINE [Suspect]
     Active Substance: HYDROXYCHLOROQUINE

REACTIONS (5)
  - Cushingoid [Unknown]
  - Sleep apnoea syndrome [Unknown]
  - Hyperglycaemia [Unknown]
  - Drug ineffective [Unknown]
  - Wound [Unknown]
